FAERS Safety Report 9607262 (Version 1)
Quarter: 2013Q4

REPORT INFORMATION
  Report Type: Spontaneous
  Country: FR (occurrence: FR)
  Receive Date: 20131009
  Receipt Date: 20131009
  Transmission Date: 20140711
  Serious: Yes (Other)
  Sender: FDA-Public Use
  Company Number: FR-009507513-1310FRA000166

PATIENT
  Age: 60 Year
  Sex: Female

DRUGS (4)
  1. EMEND [Suspect]
     Indication: PROPHYLAXIS OF NAUSEA AND VOMITING
     Dosage: UNK
     Route: 048
     Dates: start: 20130710, end: 20130807
  2. OXALIPLATIN [Suspect]
     Indication: ADENOCARCINOMA GASTRIC
     Dosage: 140 MG, CYCLICAL
     Route: 041
     Dates: start: 20130710, end: 20130807
  3. FLUOROURACIL [Suspect]
     Indication: ADENOCARCINOMA GASTRIC
     Dosage: UNK, CYCLICAL
     Route: 041
     Dates: start: 20130710, end: 20130807
  4. ZOPHREN (ONDANSETRON) [Suspect]
     Indication: PROPHYLAXIS OF NAUSEA AND VOMITING
     Dosage: UNK
     Dates: start: 20130716, end: 20130807

REACTIONS (3)
  - Visual field defect [Recovered/Resolved]
  - Visual field defect [Recovered/Resolved]
  - Papilloedema [Unknown]
